FAERS Safety Report 5871451-3 (Version None)
Quarter: 2008Q3

REPORT INFORMATION
  Report Type: 
  Country: None (occurrence: None)
  Receive Date: 20080905
  Receipt Date: 20080905
  Transmission Date: 20090109
  Serious: Yes (Hospitalization)
  Sender: FDA-Public Use
  Company Number: PHEH1997US05210

PATIENT
  Sex: Female
  Weight: 62 kg

DRUGS (7)
  1. NEORAL [Suspect]
     Route: 048
     Dates: start: 19941215
  2. AZATHIOPRINE [Concomitant]
  3. PREDNISONE [Concomitant]
  4. LABETALOL HCL [Concomitant]
  5. PROCARDIA [Concomitant]
  6. FAMOTIDINE [Concomitant]
  7. AMPHOJEL (ALUMINIUM HYDROXIDE GEL) [Concomitant]

REACTIONS (1)
  - CYTOMEGALOVIRUS INFECTION [None]
